FAERS Safety Report 5780881-X (Version None)
Quarter: 2008Q2

REPORT INFORMATION
  Report Type: 
  Country: None (occurrence: None)
  Receive Date: 20080620
  Receipt Date: 20080611
  Transmission Date: 20081010
  Serious: Yes (Hospitalization)
  Sender: FDA-Public Use
  Company Number: JP-AMGEN-US264422

PATIENT
  Sex: Female
  Weight: 60 kg

DRUGS (12)
  1. ENBREL [Suspect]
     Indication: RHEUMATOID ARTHRITIS
     Route: 058
     Dates: start: 20071113, end: 20080122
  2. BREDININ [Suspect]
     Indication: RHEUMATOID ARTHRITIS
     Route: 048
     Dates: end: 20071113
  3. RHEUMATREX [Suspect]
     Indication: RHEUMATOID ARTHRITIS
     Route: 048
     Dates: end: 20080123
  4. PREDONINE [Suspect]
     Indication: RHEUMATOID ARTHRITIS
     Dosage: UNSPECIFIED
     Route: 048
     Dates: end: 20080123
  5. RIMATIL [Concomitant]
     Indication: RHEUMATOID ARTHRITIS
     Route: 048
     Dates: start: 20070314, end: 20080123
  6. CYTOTEC [Concomitant]
     Indication: PROPHYLAXIS AGAINST GASTROINTESTINAL ULCER
     Route: 048
     Dates: start: 20071010, end: 20080123
  7. ALFAROL [Concomitant]
     Indication: OSTEOPOROSIS PROPHYLAXIS
     Route: 048
     Dates: end: 20080123
  8. FOLIAMIN [Concomitant]
     Route: 048
     Dates: end: 20080123
  9. OMEPRAL [Concomitant]
     Indication: PROPHYLAXIS AGAINST GASTROINTESTINAL ULCER
     Route: 048
     Dates: start: 20071010
  10. MAGNESIUM HYDROXIDE TAB [Concomitant]
     Indication: PROPHYLAXIS AGAINST GASTROINTESTINAL ULCER
     Dosage: WITH ALUMINUM HYDROXIDE 45 ML/DAY
     Route: 048
     Dates: start: 20071010, end: 20080123
  11. CELECOXIB [Concomitant]
     Indication: PAIN
     Route: 048
     Dates: start: 20071010, end: 20080123
  12. GASTROM [Concomitant]
     Indication: PROPHYLAXIS AGAINST GASTROINTESTINAL ULCER
     Route: 048
     Dates: start: 20070926

REACTIONS (2)
  - DIARRHOEA [None]
  - PNEUMOCYSTIS JIROVECI PNEUMONIA [None]
